FAERS Safety Report 7374779-3 (Version None)
Quarter: 2011Q1

REPORT INFORMATION
  Report Type: 
  Country: None (occurrence: None)
  Receive Date: 20110325
  Receipt Date: 20101103
  Transmission Date: 20110831
  Serious: No
  Sender: FDA-Public Use
  Company Number: US-MYLANLABS-2010S1020385

PATIENT
  Sex: Male

DRUGS (4)
  1. FENTANYL-100 [Suspect]
     Dosage: CHANGED Q72H
     Route: 062
  2. FENTANYL-100 [Suspect]
     Indication: PAIN
     Dosage: Q72H
     Route: 062
  3. FLOMAX [Concomitant]
  4. PRINZIDE [Concomitant]

REACTIONS (4)
  - URINARY RETENTION [None]
  - DECREASED APPETITE [None]
  - ANXIETY [None]
  - WEIGHT DECREASED [None]
